FAERS Safety Report 7390087-9 (Version None)
Quarter: 2011Q2

REPORT INFORMATION
  Report Type: 
  Country: None (occurrence: None)
  Receive Date: 20110401
  Receipt Date: 20110329
  Transmission Date: 20111010
  Serious: Yes (Other)
  Sender: FDA-Public Use
  Company Number: CA-PFIZER INC-2011028110

PATIENT
  Age: 59 Year
  Sex: Female
  Weight: 58.957 kg

DRUGS (2)
  1. AVALIDE [Concomitant]
     Indication: HYPERTENSION
     Dosage: UNK
  2. CHAMPIX [Suspect]
     Indication: SMOKING CESSATION THERAPY
     Dosage: 1 MG, 1X/DAY
     Dates: start: 20101213, end: 20110120

REACTIONS (5)
  - PRURITUS [None]
  - SKIN EXFOLIATION [None]
  - URTICARIA [None]
  - SKIN BURNING SENSATION [None]
  - RASH GENERALISED [None]
